FAERS Safety Report 9664047 (Version 2)
Quarter: 2014Q2

REPORT INFORMATION
  Report Type: Spontaneous
  Country: US (occurrence: US)
  Receive Date: 20131101
  Receipt Date: 20140516
  Transmission Date: 20141212
  Serious: Yes (Hospitalization, Other)
  Sender: FDA-Public Use
  Company Number: US-BAYER-2013-131496

PATIENT
  Age: 42 Year
  Sex: Female
  Weight: 81.9 kg

DRUGS (6)
  1. YAZ [Suspect]
     Indication: MENOPAUSAL SYMPTOMS
  2. DURAGESIC [Concomitant]
     Dosage: 100 ?G, Q72HR
     Route: 048
  3. NEURONTIN [Concomitant]
     Dosage: 600 MG, QID
     Route: 048
  4. EFFEXOR [Concomitant]
     Dosage: 150 MG, UNK
     Route: 048
  5. PERCOCET [Concomitant]
     Dosage: 5 MG, PRN
     Route: 048
  6. FLEXERIL [Concomitant]
     Indication: PAIN
     Route: 048

REACTIONS (2)
  - Pulmonary embolism [Recovered/Resolved]
  - Deep vein thrombosis [None]
